FAERS Safety Report 6622248-8 (Version None)
Quarter: 2010Q1

REPORT INFORMATION
  Report Type: 
  Country: None (occurrence: None)
  Receive Date: 20100304
  Receipt Date: 20100217
  Transmission Date: 20100710
  Serious: Yes (Hospitalization)
  Sender: FDA-Public Use
  Company Number: GB-DEXPHARM-20091996

PATIENT
  Age: 64 Year
  Sex: Male

DRUGS (1)
  1. CHLORAPREP [Suspect]
     Indication: SEPSIS
     Dosage: DOSE: 1 DF DOSAGE FORM TOPICAL
     Route: 061

REACTIONS (7)
  - APPLICATION SITE DERMATITIS [None]
  - APPLICATION SITE ERYTHEMA [None]
  - APPLICATION SITE INFLAMMATION [None]
  - CHILLS [None]
  - DEVICE RELATED SEPSIS [None]
  - MALAISE [None]
  - PYREXIA [None]
